FAERS Safety Report 23626553 (Version 1)
Quarter: 2024Q1

REPORT INFORMATION
  Report Type: Spontaneous
  Country: NL (occurrence: None)
  Receive Date: 20240313
  Receipt Date: 20240313
  Transmission Date: 20240410
  Serious: Yes (Hospitalization)
  Sender: FDA-Public Use
  Company Number: 2024A054409

PATIENT
  Age: 79 Year
  Sex: Male
  Weight: 103 kg

DRUGS (8)
  1. DAPAGLIFLOZIN [Suspect]
     Active Substance: DAPAGLIFLOZIN
     Indication: Type 2 diabetes mellitus
     Dosage: 1 TABLET ONCE A DAY
     Route: 048
     Dates: start: 20220613
  2. ENALAPRIL [Concomitant]
     Active Substance: ENALAPRIL
     Dosage: TABLET, 20 MG (MILLIGRAM)
  3. OMEPRAZOLE [Concomitant]
     Active Substance: OMEPRAZOLE
     Dosage: GASTRO-RESISTANT CAPSULE, 20 MG (MILLIGRAMS)
  4. GLIMEPIRIDE [Concomitant]
     Active Substance: GLIMEPIRIDE
     Dosage: TABLET, 3 MG (MILLIGRAM) UNKNOWN
  5. HYDROCHLOROTHIAZIDE [Concomitant]
     Active Substance: HYDROCHLOROTHIAZIDE
     Dosage: TABLET, 12.5 MG (MILLIGRAM)
  6. SIMVASTATIN [Concomitant]
     Active Substance: SIMVASTATIN
     Dosage: FILM-COATED TABLET, 20 MG (MILLIGRAM)
  7. METFORMIN [Concomitant]
     Active Substance: METFORMIN HYDROCHLORIDE
     Dosage: TABLET, 500 MG (MILLIGRAM)
  8. METOPROLOL SUCCINATE [Concomitant]
     Active Substance: METOPROLOL SUCCINATE
     Dosage: MODIFIED-RELEASE TABLET, 100 MG (MILLIGRAM)

REACTIONS (1)
  - Gangrene [Unknown]
